FAERS Safety Report 7200211-6 (Version None)
Quarter: 2010Q4

REPORT INFORMATION
  Report Type: 
  Country: None (occurrence: None)
  Receive Date: 20101214
  Receipt Date: 20101130
  Transmission Date: 20110411
  Serious: No
  Sender: FDA-Public Use
  Company Number: 010058

PATIENT
  Age: 59 Year
  Sex: Male

DRUGS (2)
  1. PLETAL [Suspect]
     Indication: CEREBRAL INFARCTION
     Dosage: 100 MG, BID, ORAL
     Route: 048
     Dates: start: 20100526, end: 20100609
  2. CATACLOT (OZAGREL SODIUM) INJECTION [Suspect]
     Indication: PRODUCT USED FOR UNKNOWN INDICATION
     Dosage: 80 MG, BID, INTRAVENOUS
     Route: 042
     Dates: start: 20100526, end: 20100527

REACTIONS (1)
  - HAEMORRHAGIC CEREBRAL INFARCTION [None]
